FAERS Safety Report 19690743 (Version 1)
Quarter: 2021Q3

REPORT INFORMATION
  Report Type: Spontaneous
  Country: US (occurrence: US)
  Receive Date: 20210812
  Receipt Date: 20210812
  Transmission Date: 20211014
  Serious: Yes (Other)
  Sender: FDA-Public Use
  Company Number: US-JNJFOC-20210810226

PATIENT
  Sex: Female
  Weight: 74 kg

DRUGS (1)
  1. XARELTO [Suspect]
     Active Substance: RIVAROXABAN
     Indication: PRODUCT USED FOR UNKNOWN INDICATION
     Dosage: PRESCRIPTION NUMBER :1134621
     Route: 048
     Dates: start: 2017

REACTIONS (6)
  - Cerebrovascular accident [Unknown]
  - Cerebral thrombosis [Unknown]
  - Myocardial infarction [Unknown]
  - Haematochezia [Unknown]
  - Blindness unilateral [Unknown]
  - Abdominal pain upper [Unknown]
